FAERS Safety Report 8053326-7 (Version None)
Quarter: 2012Q1

REPORT INFORMATION
  Report Type: 
  Country: None (occurrence: None)
  Receive Date: 20120118
  Receipt Date: 20120104
  Transmission Date: 20120608
  Serious: Yes (Other)
  Sender: FDA-Public Use
  Company Number: US-WATSON-2012-00144

PATIENT
  Age: 55 Year
  Sex: Male

DRUGS (1)
  1. CYANOCOBALAMIN [Suspect]
     Indication: PRODUCT USED FOR UNKNOWN INDICATION
     Route: 030

REACTIONS (5)
  - FATIGUE [None]
  - ANGIOEDEMA [None]
  - NAUSEA [None]
  - HYPERSENSITIVITY [None]
  - REACTION TO PRESERVATIVES [None]
